FAERS Safety Report 4599482-4 (Version None)
Quarter: 2005Q1

REPORT INFORMATION
  Report Type: 
  Country: None (occurrence: None)
  Receive Date: 20050303
  Receipt Date: 20050216
  Transmission Date: 20050727
  Serious: Yes (Death)
  Sender: FDA-Public Use
  Company Number: AZAUS200500067

PATIENT
  Age: 78 Year
  Sex: Female
  Weight: 38.5557 kg

DRUGS (10)
  1. VIDAZA [Suspect]
     Indication: REFRACTORY ANAEMIA
     Dosage: 106 MG, DAILY X 7 DAYS (SKIP SAT + SUN)), SUBCUTANEOUS
     Route: 058
     Dates: start: 20050118, end: 20050126
  2. ANZAMET (DOLASETRON MESILATE) [Concomitant]
  3. ALOXI [Concomitant]
  4. G-CSF (GRANULOCYTE COLONY STIMULATING FACTOR) [Concomitant]
  5. PLAVIX [Concomitant]
  6. NORVASC [Concomitant]
  7. CLARITIN-D [Concomitant]
  8. BUTISOL (SECBUTABARBITAL) [Concomitant]
  9. VITAMIN B (VITAMIN B) [Concomitant]
  10. OSCAL (CALCIUM CARBONATE) [Concomitant]

REACTIONS (3)
  - PLATELET COUNT INCREASED [None]
  - RESPIRATORY DISTRESS [None]
  - WHITE BLOOD CELL COUNT DECREASED [None]
